FAERS Safety Report 8542331-X (Version None)
Quarter: 2012Q3

REPORT INFORMATION
  Report Type: 
  Country: None (occurrence: None)
  Receive Date: 20120726
  Receipt Date: 20120302
  Transmission Date: 20120928
  Serious: No
  Sender: FDA-Public Use
  Company Number: US-ASTRAZENECA-2011SE56395

PATIENT
  Age: 51 Year
  Sex: Female
  Weight: 86.2 kg

DRUGS (16)
  1. SEROQUEL XR [Suspect]
     Route: 048
  2. SEROQUEL XR [Suspect]
     Dosage: TWO 400 MG TABLETS , AT NIGHT
     Route: 048
     Dates: start: 20060101
  3. AMBIENT [Concomitant]
     Indication: SLEEP DISORDER
  4. PROZAC [Concomitant]
  5. OXYCODONE HCL [Concomitant]
     Indication: PAIN
  6. NISENTA [Concomitant]
     Indication: PAIN
  7. SEROQUEL XR [Suspect]
     Indication: BIPOLAR I DISORDER
     Dosage: TWO 400 MG TABLETS AT NIGHT
     Route: 048
     Dates: end: 20110801
  8. SEROQUEL XR [Suspect]
     Indication: MANIA
     Dosage: TWO 400 MG TABLETS AT NIGHT
     Route: 048
     Dates: end: 20110801
  9. TARGECEF [Concomitant]
     Indication: PAIN
  10. SEROQUEL XR [Suspect]
     Route: 048
  11. PERCOCET [Concomitant]
     Indication: PAIN
  12. LORTAZEPAM [Concomitant]
     Indication: DRUG WITHDRAWAL MAINTENANCE THERAPY
  13. SEROQUEL XR [Suspect]
     Dosage: TWO 400 MG TABLETS , AT NIGHT
     Route: 048
     Dates: start: 20060101
  14. SEROQUEL XR [Suspect]
     Route: 048
  15. SEROQUEL XR [Suspect]
     Route: 048
  16. LAMOTRIGINE [Concomitant]

REACTIONS (12)
  - ANXIETY [None]
  - MANIA [None]
  - VOMITING [None]
  - DRUG DOSE OMISSION [None]
  - DIARRHOEA [None]
  - INSOMNIA [None]
  - MEMORY IMPAIRMENT [None]
  - FEELING ABNORMAL [None]
  - WEIGHT INCREASED [None]
  - DRUG WITHDRAWAL SYNDROME [None]
  - MUSCLE TWITCHING [None]
  - DEPRESSION [None]
